FAERS Safety Report 6394925-8 (Version None)
Quarter: 2009Q4

REPORT INFORMATION
  Report Type: 
  Country: None (occurrence: None)
  Receive Date: 20091009
  Receipt Date: 20090930
  Transmission Date: 20100525
  Serious: Yes (Death)
  Sender: FDA-Public Use
  Company Number: JP-ROCHE-660987

PATIENT
  Age: 53 Year
  Sex: Female

DRUGS (2)
  1. XELODA [Suspect]
     Indication: BREAST CANCER METASTATIC
     Dosage: DRUG REPORTED AS; XELODA 300
     Route: 048
  2. MEDROXYPROGESTERONE ACETATE [Concomitant]
     Route: 048

REACTIONS (1)
  - MALIGNANT ASCITES [None]
